FAERS Safety Report 23721094 (Version 4)
Quarter: 2024Q2

REPORT INFORMATION
  Report Type: Spontaneous
  Country: US (occurrence: US)
  Receive Date: 20240409
  Receipt Date: 20240527
  Transmission Date: 20240716
  Serious: Yes (Other)
  Sender: FDA-Public Use
  Company Number: US-BAYER-2024A049590

PATIENT
  Age: 51 Year
  Sex: Female
  Weight: 106.58 kg

DRUGS (13)
  1. XARELTO [Suspect]
     Active Substance: RIVAROXABAN
     Indication: Product used for unknown indication
     Route: 048
  2. ADEMPAS [Suspect]
     Active Substance: RIOCIGUAT
     Indication: Pulmonary arterial hypertension
     Dosage: UNK
     Route: 048
     Dates: start: 20240301
  3. ADEMPAS [Suspect]
     Active Substance: RIOCIGUAT
     Dosage: 1.5 MG, TID
     Route: 048
  4. ADEMPAS [Suspect]
     Active Substance: RIOCIGUAT
     Dosage: 2 MG, TID
     Route: 048
  5. ADEMPAS [Suspect]
     Active Substance: RIOCIGUAT
     Dosage: 2.5 MG, TID
     Route: 048
  6. ROSUVASTATIN CALCIUM [Concomitant]
     Active Substance: ROSUVASTATIN CALCIUM
  7. FLONASE ALLERGY RELIEF [Concomitant]
     Active Substance: FLUTICASONE PROPIONATE
  8. VITAMINS NOS [Concomitant]
     Active Substance: VITAMINS
  9. IRON [Concomitant]
     Active Substance: IRON
  10. OXYGEN [Concomitant]
     Active Substance: OXYGEN
  11. CALCIUM CARBONATE [Concomitant]
     Active Substance: CALCIUM CARBONATE
  12. METFORMIN HYDROCHLORIDE [Concomitant]
     Active Substance: METFORMIN HYDROCHLORIDE
  13. CETIRIZINE HCL [Concomitant]
     Active Substance: CETIRIZINE HYDROCHLORIDE

REACTIONS (11)
  - Anal haemorrhage [Unknown]
  - Haematochezia [Unknown]
  - Decreased appetite [Unknown]
  - Dizziness exertional [Unknown]
  - Frequent bowel movements [Unknown]
  - Muscle tightness [Unknown]
  - Blepharospasm [Not Recovered/Not Resolved]
  - Pain [Unknown]
  - Arthralgia [Unknown]
  - Musculoskeletal pain [Unknown]
  - Peripheral swelling [Not Recovered/Not Resolved]

NARRATIVE: CASE EVENT DATE: 20240331
